FAERS Safety Report 9501020 (Version 1)
Quarter: 2013Q1

REPORT INFORMATION
  Report Type: Spontaneous
  Country: US (occurrence: None)
  Receive Date: 20130116
  Receipt Date: 20130116
  Transmission Date: 20140127
  Serious: Yes (Life-Threatening, Hospitalization)
  Sender: FDA-Public Use
  Company Number: 1207USA001384

PATIENT
  Sex: Male

DRUGS (1)
  1. INVANZ [Suspect]
     Indication: INFECTION
     Route: 042
     Dates: end: 20120614

REACTIONS (1)
  - Grand mal convulsion [None]
